FAERS Safety Report 20990467 (Version 2)
Quarter: 2022Q3

REPORT INFORMATION
  Report Type: Spontaneous
  Country: CA (occurrence: CA)
  Receive Date: 20220622
  Receipt Date: 20220716
  Transmission Date: 20221026
  Serious: Yes (Other)
  Sender: FDA-Public Use
  Company Number: CA-JNJFOC-20220632744

PATIENT
  Age: 46 Year
  Sex: Female

DRUGS (6)
  1. REMICADE [Suspect]
     Active Substance: INFLIXIMAB
     Indication: Ankylosing spondylitis
     Route: 041
  2. BACLOFEN [Concomitant]
     Active Substance: BACLOFEN
  3. CYMBALTA [Concomitant]
     Active Substance: DULOXETINE HYDROCHLORIDE
  4. LIDOCAINE [Concomitant]
     Active Substance: LIDOCAINE
     Route: 061
  5. METHOTREXATE [Concomitant]
     Active Substance: METHOTREXATE
  6. TRAZODONE [Concomitant]
     Active Substance: TRAZODONE HYDROCHLORIDE

REACTIONS (9)
  - Trigeminal neuralgia [Unknown]
  - Road traffic accident [Unknown]
  - Inflammatory bowel disease [Unknown]
  - Malaise [Unknown]
  - Arthropathy [Unknown]
  - Disease recurrence [Unknown]
  - Pain in extremity [Unknown]
  - Therapeutic response shortened [Unknown]
  - Off label use [Unknown]
